FAERS Safety Report 9321498 (Version 1)
Quarter: 2013Q2

REPORT INFORMATION
  Report Type: Spontaneous
  Country: US (occurrence: US)
  Receive Date: 20130531
  Receipt Date: 20130531
  Transmission Date: 20140414
  Serious: No
  Sender: FDA-Public Use
  Company Number: US-FOUGERA-2012FO001086

PATIENT
  Age: 65 Year
  Sex: Male

DRUGS (1)
  1. HYDROCORTISONE [Suspect]
     Indication: MECHANICAL URTICARIA
     Route: 061
     Dates: start: 20120424

REACTIONS (1)
  - Arthritis [Not Recovered/Not Resolved]
